FAERS Safety Report 17071141 (Version 1)
Quarter: 2019Q4

REPORT INFORMATION
  Report Type: Spontaneous
  Country: US (occurrence: US)
  Receive Date: 20191025
  Receipt Date: 20191025
  Transmission Date: 20200122
  Serious: No
  Sender: FDA-Public Use
  Company Number: None

PATIENT
  Sex: Female

DRUGS (1)
  1. IBRANCE [Suspect]
     Active Substance: PALBOCICLIB
     Indication: BREAST CANCER
     Route: 048
     Dates: start: 20190506

REACTIONS (7)
  - Stomatitis [None]
  - Onychoclasis [None]
  - Dry eye [None]
  - Alopecia [None]
  - Hair texture abnormal [None]
  - Madarosis [None]
  - Pruritus [None]
